FAERS Safety Report 15210728 (Version 1)
Quarter: 2018Q3

REPORT INFORMATION
  Report Type: Spontaneous
  Country: GB (occurrence: GB)
  Receive Date: 20180728
  Receipt Date: 20180728
  Transmission Date: 20181010
  Serious: Yes (Other)
  Sender: FDA-Public Use
  Company Number: GB-TEVA-2018-GB-930640

PATIENT
  Age: 50 Year
  Sex: Male
  Weight: 85 kg

DRUGS (13)
  1. SYMBICORT [Concomitant]
     Active Substance: BUDESONIDE\FORMOTEROL FUMARATE DIHYDRATE
     Dosage: 2 DOSAGE FORMS DAILY; 400/12 TURBOHALER
     Route: 055
     Dates: start: 20180404
  2. VENTOLIN [Concomitant]
     Active Substance: ALBUTEROL SULFATE
     Dosage: AS DIRECTED.
     Dates: start: 20180404
  3. FLUOXETINE [Suspect]
     Active Substance: FLUOXETINE HYDROCHLORIDE
     Indication: OBSESSIVE THOUGHTS
     Route: 048
     Dates: start: 20180621, end: 20180624
  4. ATORVASTATIN [Concomitant]
     Active Substance: ATORVASTATIN
     Dosage: 40 MILLIGRAM DAILY;
     Dates: start: 20180404
  5. VITAMIN B12 [Concomitant]
     Active Substance: CYANOCOBALAMIN
     Dates: start: 20170807
  6. HYDROXOCOBALAMIN [Concomitant]
     Active Substance: HYDROXOCOBALAMIN
     Dosage: 1MG/1ML. IMMEDIATELY.
     Dates: start: 20180604
  7. PERINDOPRIL TERT?BUTYLAMINE [Concomitant]
     Active Substance: PERINDOPRIL ERBUMINE
     Dosage: 8 MILLIGRAM DAILY;
     Dates: start: 20180404
  8. RIVAROXABAN [Concomitant]
     Active Substance: RIVAROXABAN
     Dosage: 40 MILLIGRAM DAILY;
     Dates: start: 20180525
  9. CODEINE [Concomitant]
     Active Substance: CODEINE
     Dosage: 1?2 4 TIMES A DAY.
     Dates: start: 20180508, end: 20180620
  10. PREGABALIN. [Concomitant]
     Active Substance: PREGABALIN
     Dosage: 150 MILLIGRAM DAILY; AS TRIAL.
     Dates: start: 20180406
  11. EPLERENONE. [Concomitant]
     Active Substance: EPLERENONE
     Dosage: 25 MILLIGRAM DAILY; AS TRIAL IN PLACE OF SPIRONOLACTONE DUE TO SIDE EFFECTS.
     Dates: start: 20180416
  12. DIGOXIN. [Concomitant]
     Active Substance: DIGOXIN
     Dosage: 250 MICROGRAM DAILY;
     Dates: start: 20180525
  13. BISOPROLOL [Concomitant]
     Active Substance: BISOPROLOL
     Dosage: 20 MILLIGRAM DAILY;
     Dates: start: 20180404

REACTIONS (1)
  - Anaphylactic reaction [Recovered/Resolved]
